FAERS Safety Report 15526646 (Version 1)
Quarter: 2018Q4

REPORT INFORMATION
  Report Type: Spontaneous
  Country: US (occurrence: US)
  Receive Date: 20181018
  Receipt Date: 20181018
  Transmission Date: 20190205
  Serious: No
  Sender: FDA-Public Use
  Company Number: PHEH2018US043560

PATIENT

DRUGS (1)
  1. ZOMETA [Suspect]
     Active Substance: ZOLEDRONIC ACID
     Indication: PRODUCT USED FOR UNKNOWN INDICATION
     Dosage: UNK
     Route: 065
     Dates: end: 201808

REACTIONS (6)
  - Dyspnoea [Unknown]
  - Hypoaesthesia [Unknown]
  - Fatigue [Unknown]
  - Nausea [Unknown]
  - Chest pain [Unknown]
  - Swelling face [Unknown]
